FAERS Safety Report 5118912-2 (Version None)
Quarter: 2006Q3

REPORT INFORMATION
  Report Type: 
  Country: None (occurrence: None)
  Receive Date: 20060927
  Receipt Date: 20060913
  Transmission Date: 20061208
  Serious: Yes (Hospitalization)
  Sender: FDA-Public Use
  Company Number: 220002N06FRA

PATIENT
  Age: 56 Year
  Sex: Female
  Weight: 79 kg

DRUGS (8)
  1. SAIZEN [Suspect]
     Indication: HYPOPITUITARISM
     Dosage: 0.8 MG, 1 IN 1 DAYS, INTRAVENOUS
     Route: 042
     Dates: start: 20030625
  2. HYDROCORTISONE [Suspect]
     Dosage: 20 MG, 1 IN 1 DAYS, ORAL
     Route: 048
     Dates: start: 19820101
  3. KLIOGEST (TRISEKVENS) [Suspect]
     Indication: HYPOPITUITARISM
     Dosage: 1 DOSAGE FORMS, 1 IN 1 DAYS, ORAL
     Route: 048
     Dates: start: 20030806
  4. LEVOTHYROXINE SODIUM [Concomitant]
     Indication: HYPOPITUITARISM
     Dosage: 100 MCG, 1 IN 1 DAYS, ORAL
     Route: 048
     Dates: start: 20051207
  5. FENOFIBRATE [Suspect]
     Indication: HYPERTRIGLYCERIDAEMIA
     Dosage: 160 MG, 1 IN 1 DAYS, ORAL
     Route: 048
     Dates: start: 20040622
  6. OROCAL D3 (LEKOVIT CA) [Suspect]
     Indication: OSTEOPENIA
     Dosage: 1 DOSAGE FORMS, 1 IN 1 DAYS, ORAL
     Route: 048
     Dates: start: 20060404
  7. PROZAC [Suspect]
     Indication: DEPRESSION
     Dosage: 20 MG, 1 IN 1 DAYS, ORAL
     Route: 048
     Dates: start: 20030806
  8. ACYCLOVIR [Concomitant]

REACTIONS (14)
  - ANGIOPATHY [None]
  - BACTERIAL INFECTION [None]
  - BRAIN OEDEMA [None]
  - C-REACTIVE PROTEIN INCREASED [None]
  - CONFUSIONAL STATE [None]
  - HEADACHE [None]
  - HERPES SIMPLEX [None]
  - MENINGISM [None]
  - MENINGITIS [None]
  - MUSCULOSKELETAL STIFFNESS [None]
  - PHARYNGITIS [None]
  - PHARYNGOLARYNGEAL PAIN [None]
  - PYREXIA [None]
  - WHITE BLOOD CELL COUNT INCREASED [None]
